FAERS Safety Report 6842175-0 (Version None)
Quarter: 2010Q3

REPORT INFORMATION
  Report Type: 
  Country: None (occurrence: None)
  Receive Date: 20100714
  Receipt Date: 20070723
  Transmission Date: 20110219
  Serious: No
  Sender: FDA-Public Use
  Company Number: US-PFIZER INC-2007061684

PATIENT
  Sex: Female
  Weight: 60.8 kg

DRUGS (6)
  1. CHANTIX [Suspect]
     Indication: SMOKING CESSATION THERAPY
     Dates: start: 20070713, end: 20070714
  2. SYNTHROID [Concomitant]
  3. ACETYLSALICYLIC ACID [Concomitant]
  4. DIAZEPAM [Concomitant]
  5. DRUG, UNSPECIFIED [Concomitant]
  6. ALBUTEROL [Concomitant]
     Route: 055

REACTIONS (6)
  - ABDOMINAL DISCOMFORT [None]
  - DIZZINESS [None]
  - GASTROOESOPHAGEAL REFLUX DISEASE [None]
  - MALAISE [None]
  - NAUSEA [None]
  - VOMITING [None]
